FAERS Safety Report 6044497-2 (Version None)
Quarter: 2009Q1

REPORT INFORMATION
  Report Type: 
  Country: None (occurrence: None)
  Receive Date: 20090120
  Receipt Date: 20090109
  Transmission Date: 20090719
  Serious: Yes (Hospitalization)
  Sender: FDA-Public Use
  Company Number: DE-PFIZER INC-2008041737

PATIENT

DRUGS (5)
  1. BLINDED *PLACEBO [Suspect]
     Indication: CARDIAC FAILURE
     Route: 048
     Dates: start: 20071213, end: 20080310
  2. EPLERENONE [Suspect]
     Indication: CARDIAC FAILURE
     Route: 048
     Dates: start: 20071213, end: 20080310
  3. ACETYLSALICYLIC ACID SRT [Concomitant]
     Dates: start: 20040514
  4. RAMIPRIL [Concomitant]
     Dates: start: 20060615
  5. PRAVASTATIN SODIUM [Concomitant]
     Dates: start: 20040514

REACTIONS (4)
  - CHRONIC OBSTRUCTIVE PULMONARY DISEASE [None]
  - CONDITION AGGRAVATED [None]
  - ERYSIPELAS [None]
  - GASTRITIS EROSIVE [None]
